FAERS Safety Report 25624670 (Version 2)
Quarter: 2025Q3

REPORT INFORMATION
  Report Type: Report from Study
  Country: US (occurrence: US)
  Receive Date: 20250730
  Receipt Date: 20250818
  Transmission Date: 20251021
  Serious: Yes (Other)
  Sender: ABBVIE
  Company Number: US-ABBVIE-6193809

PATIENT
  Age: 80 Year
  Sex: Male
  Weight: 70 kg

DRUGS (5)
  1. VENCLEXTA [Suspect]
     Active Substance: VENETOCLAX
     Indication: Acute myeloid leukaemia
     Dosage: FORM STRENGTH: 100 MILLIGRAM ?TAKE 1 TABLET (100 MG) BY MOUTH ONCE DAILY FOR 7 DAYS OF EACH NEW C...
     Route: 048
     Dates: start: 202106
  2. VENCLEXTA [Suspect]
     Active Substance: VENETOCLAX
     Indication: Acute myeloid leukaemia
     Dosage: ONCE DAILY FOR 7 DAYS OF EACH NEW CYCLE?RESTARTED
     Route: 048
     Dates: start: 202111
  3. VENCLEXTA [Suspect]
     Active Substance: VENETOCLAX
     Indication: Acute myeloid leukaemia
     Route: 048
     Dates: start: 20200716, end: 202106
  4. VENCLEXTA [Suspect]
     Active Substance: VENETOCLAX
     Indication: Acute myeloid leukaemia
     Route: 048
  5. DACOGEN [Concomitant]
     Active Substance: DECITABINE
     Indication: Acute myeloid leukaemia
     Route: 042

REACTIONS (7)
  - Bone marrow failure [Recovered/Resolved]
  - Drug hypersensitivity [Unknown]
  - Haemoglobin decreased [Recovered/Resolved]
  - Bone marrow disorder [Unknown]
  - Platelet count decreased [Recovered/Resolved]
  - Therapeutic product effect increased [Recovered/Resolved]
  - Drug ineffective [Recovered/Resolved]

NARRATIVE: CASE EVENT DATE: 20201101
